FAERS Safety Report 22138430 (Version 1)
Quarter: 2023Q1

REPORT INFORMATION
  Report Type: Spontaneous
  Country: IL (occurrence: IL)
  Receive Date: 20230326
  Receipt Date: 20230326
  Transmission Date: 20230417
  Serious: Yes (Other)
  Sender: FDA-Public Use
  Company Number: IL-TEVA-2023-IL-2870395

PATIENT
  Age: 60 Year
  Sex: Female

DRUGS (1)
  1. VORICONAZOLE [Suspect]
     Active Substance: VORICONAZOLE
     Indication: Product used for unknown indication
     Route: 065
     Dates: start: 20230129

REACTIONS (3)
  - Hallucination, visual [Unknown]
  - Headache [Unknown]
  - Photopsia [Unknown]

NARRATIVE: CASE EVENT DATE: 20230101
